FAERS Safety Report 13961531 (Version 1)
Quarter: 2017Q3

REPORT INFORMATION
  Report Type: Spontaneous
  Country: US (occurrence: US)
  Receive Date: 20170912
  Receipt Date: 20170912
  Transmission Date: 20171128
  Serious: No
  Sender: FDA-Public Use
  Company Number: US-INCYTE CORPORATION-2017IN007536

PATIENT

DRUGS (1)
  1. JAKAFI [Suspect]
     Active Substance: RUXOLITINIB
     Indication: MYELOFIBROSIS
     Dosage: 20 MG IN MORNING, 15 MG IN EVENING
     Route: 048

REACTIONS (3)
  - Pain in extremity [Unknown]
  - Syncope [Unknown]
  - Anaemia [Unknown]

NARRATIVE: CASE EVENT DATE: 201609
